FAERS Safety Report 25344611 (Version 5)
Quarter: 2025Q3

REPORT INFORMATION
  Report Type: Report from Study
  Country: US (occurrence: US)
  Receive Date: 20250522
  Receipt Date: 20250915
  Transmission Date: 20251020
  Serious: Yes (Other)
  Sender: TAKEDA
  Company Number: US-TAKEDA-2025TUS044459

PATIENT
  Age: 67 Year
  Sex: Female

DRUGS (3)
  1. VEDOLIZUMAB [Suspect]
     Active Substance: VEDOLIZUMAB
     Indication: Crohn^s disease
     Dosage: 300 MILLIGRAM, MONTHLY
  2. VEDOLIZUMAB [Suspect]
     Active Substance: VEDOLIZUMAB
     Indication: Crohn^s disease
     Dosage: 108 MILLIGRAM, Q2WEEKS
     Dates: start: 20250703
  3. VEDOLIZUMAB [Suspect]
     Active Substance: VEDOLIZUMAB

REACTIONS (7)
  - Systemic lupus erythematosus [Unknown]
  - Poor venous access [Unknown]
  - Malabsorption [Unknown]
  - Injection site pain [Recovered/Resolved]
  - Product dose omission issue [Unknown]
  - Device malfunction [Unknown]
  - Injection site bruising [Unknown]

NARRATIVE: CASE EVENT DATE: 20250703
